FAERS Safety Report 17916269 (Version 1)
Quarter: 2020Q2

REPORT INFORMATION
  Report Type: Spontaneous
  Country: DE (occurrence: DE)
  Receive Date: 20200619
  Receipt Date: 20200619
  Transmission Date: 20200714
  Serious: Yes (Life-Threatening, Hospitalization)
  Sender: FDA-Public Use
  Company Number: DE-009507513-2006DEU004824

PATIENT
  Age: 68 Year
  Sex: Female

DRUGS (13)
  1. NEBIVOLOL. [Concomitant]
     Active Substance: NEBIVOLOL
     Dosage: 5 MG, 0.5-0-0-0
     Route: 048
  2. CALCIVIT D [Concomitant]
     Dosage: 600|400 MG/IE, 0-0-1-0
     Route: 048
  3. SIMVASTATIN. [Suspect]
     Active Substance: SIMVASTATIN
     Dosage: 20 MG, 0-0-1-0
     Route: 048
  4. QUETIAPINE FUMARATE. [Concomitant]
     Active Substance: QUETIAPINE FUMARATE
     Dosage: 50 MG, 1-0-1-0
     Route: 048
  5. EISENTABLETTEN RATIOPHARM [Concomitant]
     Dosage: 50 MG, 1-0-0-0
     Route: 048
  6. PANTOPRAZOLE [Concomitant]
     Active Substance: PANTOPRAZOLE
     Dosage: 40 MG/ 2TAGE, 0-0-1-0
     Route: 048
  7. NOVOPULMON NOVOLIZER [Concomitant]
     Active Substance: BUDESONIDE
     Dosage: 400 ?G, 1-0-1-0, DOSIERAEROSOL
     Route: 055
  8. DAXAS [Concomitant]
     Active Substance: ROFLUMILAST
     Dosage: 500 ?G, 0-0-1-0, DOSIERAEROSOL
     Route: 055
  9. PHENPROCOUMON [Suspect]
     Active Substance: PHENPROCOUMON
     Dosage: 3 MG, NACH INR
     Route: 048
  10. LEVOTHYROXINE SODIUM. [Concomitant]
     Active Substance: LEVOTHYROXINE SODIUM
     Dosage: 75 ?G, 1-0-0-0
     Route: 048
  11. TORSEMIDE. [Concomitant]
     Active Substance: TORSEMIDE
     Dosage: 10 MG, 1-0-0-0
     Route: 048
  12. ULTIBRO [Concomitant]
     Active Substance: GLYCOPYRRONIUM\INDACATEROL
     Dosage: 43|85 ?G, 1-0-0-0, DOSIERAEROSOL
     Route: 055
  13. SODIUM BICARBONATE. [Concomitant]
     Active Substance: SODIUM BICARBONATE
     Dosage: NK MG, 1-0-0-0
     Route: 048

REACTIONS (6)
  - Pallor [Unknown]
  - Hypotension [Unknown]
  - Anaemia [Unknown]
  - Product prescribing error [Unknown]
  - Haematochezia [Unknown]
  - General physical health deterioration [Unknown]
